FAERS Safety Report 6899413-8 (Version None)
Quarter: 2010Q3

REPORT INFORMATION
  Report Type: 
  Country: None (occurrence: None)
  Receive Date: 20100803
  Receipt Date: 20090601
  Transmission Date: 20110219
  Serious: No
  Sender: FDA-Public Use
  Company Number: US-PFIZER INC-2009176830

PATIENT
  Sex: Female
  Weight: 61.224 kg

DRUGS (6)
  1. NEURONTIN [Suspect]
     Indication: INTERVERTEBRAL DISC PROTRUSION
     Dosage: UNK
     Route: 048
     Dates: start: 20090219
  2. NEURONTIN [Suspect]
     Indication: ASTHENIA
  3. OXYCODONE [Concomitant]
  4. PROZAC [Concomitant]
  5. ZANAFLEX [Concomitant]
  6. LODINE [Concomitant]

REACTIONS (2)
  - SKIN INJURY [None]
  - TONGUE INJURY [None]
